FAERS Safety Report 24283464 (Version 4)
Quarter: 2025Q1

REPORT INFORMATION
  Report Type: Report from Study
  Country: US (occurrence: US)
  Receive Date: 20240904
  Receipt Date: 20250204
  Transmission Date: 20250408
  Serious: No
  Sender: SUNOVION
  Company Number: US-SUMITOMO PHARMA SWITZERLAND GMBH-2024SPA001244

PATIENT

DRUGS (2)
  1. ORGOVYX [Suspect]
     Active Substance: RELUGOLIX
     Indication: Prostate cancer
     Route: 048
     Dates: start: 20240723, end: 20240723
  2. ORGOVYX [Suspect]
     Active Substance: RELUGOLIX
     Dosage: 120 MG, QD
     Route: 048
     Dates: start: 20240724

REACTIONS (10)
  - Fall [Unknown]
  - Balance disorder [Unknown]
  - Somnolence [Unknown]
  - Diarrhoea [Unknown]
  - Constipation [Recovered/Resolved]
  - Flushing [Unknown]
  - Hyperhidrosis [Unknown]
  - Hot flush [Unknown]
  - Product dose omission issue [Unknown]
  - Injury [Unknown]

NARRATIVE: CASE EVENT DATE: 20240101
